FAERS Safety Report 9098779 (Version 2)
Quarter: 2013Q2

REPORT INFORMATION
  Report Type: Spontaneous
  Country: US (occurrence: US)
  Receive Date: 20130213
  Receipt Date: 20130429
  Transmission Date: 20140414
  Serious: Yes (Congenital Anomaly, Other)
  Sender: FDA-Public Use
  Company Number: US-PFIZER INC-2013056729

PATIENT
  Sex: Female

DRUGS (2)
  1. ZOLOFT [Suspect]
     Dosage: UNK
     Route: 064
  2. CELEXA [Concomitant]
     Dosage: UNK
     Route: 064

REACTIONS (4)
  - Maternal exposure during pregnancy [Unknown]
  - Heart disease congenital [Unknown]
  - Congenital anomaly [Unknown]
  - Atrial septal defect [Unknown]
